FAERS Safety Report 9218982 (Version 2)
Quarter: 2013Q3

REPORT INFORMATION
  Report Type: Spontaneous
  Country: FR (occurrence: FR)
  Receive Date: 20130409
  Receipt Date: 20130710
  Transmission Date: 20140515
  Serious: Yes (Hospitalization)
  Sender: FDA-Public Use
  Company Number: FR-PFIZER INC-2013110199

PATIENT
  Age: 88 Year
  Sex: Female

DRUGS (9)
  1. CORDARONE [Suspect]
     Dosage: UNK
     Route: 048
  2. PRADAXA [Interacting]
     Indication: ATRIAL FIBRILLATION
     Dosage: 110 MG, 2X/DAY
     Route: 048
     Dates: start: 20120918, end: 20121014
  3. PRAXILENE [Concomitant]
     Dosage: UNK
  4. CARDENSIEL [Concomitant]
     Dosage: UNK
  5. APROVEL [Concomitant]
     Dosage: UNK
  6. KEPPRA [Concomitant]
     Dosage: UNK
  7. RIVOTRIL [Concomitant]
     Dosage: UNK
  8. IPERTEN [Concomitant]
     Dosage: UNK
  9. SERETIDE [Concomitant]
     Dosage: UNK

REACTIONS (2)
  - Drug interaction [Not Recovered/Not Resolved]
  - Cerebral haematoma [Not Recovered/Not Resolved]
